FAERS Safety Report 6401059-2 (Version None)
Quarter: 2009Q4

REPORT INFORMATION
  Report Type: 
  Country: None (occurrence: None)
  Receive Date: 20091009
  Receipt Date: 20091009
  Transmission Date: 20100525
  Serious: Yes (Other)
  Sender: FDA-Public Use
  Company Number: None

PATIENT
  Age: 35 Year
  Sex: Female
  Weight: 98.8842 kg

DRUGS (1)
  1. MIRENA [Suspect]
     Indication: CONTRACEPTION
     Dosage: 5YR IUD
     Dates: start: 20081107, end: 20090921

REACTIONS (14)
  - ACNE [None]
  - ALOPECIA [None]
  - ANGER [None]
  - BACK PAIN [None]
  - BREAST TENDERNESS [None]
  - CRYING [None]
  - DEPRESSION [None]
  - IMPAIRED WORK ABILITY [None]
  - METRORRHAGIA [None]
  - MOOD ALTERED [None]
  - MUSCLE SPASMS [None]
  - RASH [None]
  - SINUS DISORDER [None]
  - WEIGHT INCREASED [None]
